FAERS Safety Report 10901991 (Version 6)
Quarter: 2020Q2

REPORT INFORMATION
  Report Type: Report from Study
  Country: DE (occurrence: DE)
  Receive Date: 20150310
  Receipt Date: 20200630
  Transmission Date: 20200713
  Serious: Yes (Hospitalization)
  Sender: FDA-Public Use
  Company Number: DE-INCYTE CORPORATION-2015IN000864

PATIENT

DRUGS (2)
  1. INCB018424 [Suspect]
     Active Substance: RUXOLITINIB
     Dosage: 5 MG, BID (2 DF PER DAY)
     Route: 048
     Dates: start: 20140626
  2. INCB018424 [Suspect]
     Active Substance: RUXOLITINIB
     Indication: MYELOFIBROSIS
     Dosage: 20 MG, BID (2 DF PER DAY)
     Route: 048
     Dates: start: 20140619, end: 20140625

REACTIONS (4)
  - Confusional state [Recovered/Resolved]
  - Aphasia [Recovered/Resolved]
  - Hypertensive crisis [Recovered/Resolved]
  - Cerebrovascular accident [Recovered/Resolved]

NARRATIVE: CASE EVENT DATE: 20150222
